FAERS Safety Report 23134803 (Version 1)
Quarter: 2023Q4

REPORT INFORMATION
  Report Type: Spontaneous
  Country: US (occurrence: US)
  Receive Date: 20231101
  Receipt Date: 20231101
  Transmission Date: 20240109
  Serious: No
  Sender: FDA-Public Use
  Company Number: US-MYLANLABS-2023M1115637

PATIENT
  Sex: Male
  Weight: 77.11 kg

DRUGS (3)
  1. LISDEXAMFETAMINE DIMESYLATE [Suspect]
     Active Substance: LISDEXAMFETAMINE DIMESYLATE
     Indication: Attention deficit hyperactivity disorder
     Dosage: 20 MILLIGRAM, QD (EVERY MORNING)
     Route: 065
     Dates: start: 20231010, end: 20231026
  2. LEXAPRO [Concomitant]
     Active Substance: ESCITALOPRAM OXALATE
     Dosage: UNK
     Route: 065
  3. LATUDA [Concomitant]
     Active Substance: LURASIDONE HYDROCHLORIDE
     Dosage: UNK
     Route: 065

REACTIONS (4)
  - Myalgia [Recovering/Resolving]
  - Social problem [Recovering/Resolving]
  - Anxiety [Recovering/Resolving]
  - Depression [Recovering/Resolving]
